FAERS Safety Report 24678894 (Version 1)
Quarter: 2024Q4

REPORT INFORMATION
  Report Type: Spontaneous
  Country: CA (occurrence: CA)
  Receive Date: 20241129
  Receipt Date: 20241129
  Transmission Date: 20250115
  Serious: Yes (Death, Life-Threatening, Hospitalization, Disabling, Other)
  Sender: Haleon PLC
  Company Number: CA-002147023-NVSC2024CA060460

PATIENT
  Age: 44 Year
  Sex: Female

DRUGS (197)
  1. DICLOFENAC SODIUM [Suspect]
     Active Substance: DICLOFENAC SODIUM
     Indication: Product used for unknown indication
     Dosage: UNK
     Route: 065
  2. FOLIC ACID [Suspect]
     Active Substance: FOLIC ACID
     Indication: Rheumatoid arthritis
     Dosage: UNK
     Route: 065
  3. SULFASALAZINE [Suspect]
     Active Substance: SULFASALAZINE
     Indication: Rheumatoid arthritis
     Route: 065
  4. PSEUDOEPHEDRINE [Suspect]
     Active Substance: PSEUDOEPHEDRINE
     Indication: Product used for unknown indication
     Route: 065
  5. CETIRIZINE HYDROCHLORIDE\PSEUDOEPHEDRINE HYDROCHLORIDE [Suspect]
     Active Substance: CETIRIZINE HYDROCHLORIDE\PSEUDOEPHEDRINE HYDROCHLORIDE
     Indication: Rheumatoid arthritis
     Route: 048
  6. CETIRIZINE HYDROCHLORIDE\PSEUDOEPHEDRINE HYDROCHLORIDE [Suspect]
     Active Substance: CETIRIZINE HYDROCHLORIDE\PSEUDOEPHEDRINE HYDROCHLORIDE
     Route: 048
  7. CETIRIZINE HYDROCHLORIDE\PSEUDOEPHEDRINE HYDROCHLORIDE [Suspect]
     Active Substance: CETIRIZINE HYDROCHLORIDE\PSEUDOEPHEDRINE HYDROCHLORIDE
     Route: 048
  8. CETIRIZINE HYDROCHLORIDE\PSEUDOEPHEDRINE HYDROCHLORIDE [Suspect]
     Active Substance: CETIRIZINE HYDROCHLORIDE\PSEUDOEPHEDRINE HYDROCHLORIDE
     Route: 065
  9. VITAMIN C [Suspect]
     Active Substance: ASCORBIC ACID
     Indication: Product used for unknown indication
     Dosage: UNK
     Route: 065
  10. TOFACITINIB CITRATE [Suspect]
     Active Substance: TOFACITINIB CITRATE
     Indication: Rheumatoid arthritis
     Route: 065
  11. TOFACITINIB CITRATE [Suspect]
     Active Substance: TOFACITINIB CITRATE
     Route: 065
  12. TOFACITINIB CITRATE [Suspect]
     Active Substance: TOFACITINIB CITRATE
     Route: 048
  13. TOFACITINIB CITRATE [Suspect]
     Active Substance: TOFACITINIB CITRATE
     Route: 048
  14. TOFACITINIB CITRATE [Suspect]
     Active Substance: TOFACITINIB CITRATE
     Route: 058
  15. SULFAMETHOXAZOLE\TRIMETHOPRIM [Suspect]
     Active Substance: SULFAMETHOXAZOLE\TRIMETHOPRIM
     Indication: Product used for unknown indication
     Route: 067
  16. SULFAMETHOXAZOLE\TRIMETHOPRIM [Suspect]
     Active Substance: SULFAMETHOXAZOLE\TRIMETHOPRIM
     Route: 065
  17. SULFAMETHOXAZOLE\TRIMETHOPRIM [Suspect]
     Active Substance: SULFAMETHOXAZOLE\TRIMETHOPRIM
     Route: 065
  18. METHOTREXATE [Suspect]
     Active Substance: METHOTREXATE
     Indication: Rheumatoid arthritis
     Route: 048
  19. METHOTREXATE [Suspect]
     Active Substance: METHOTREXATE
     Route: 048
  20. METHOTREXATE [Suspect]
     Active Substance: METHOTREXATE
     Route: 048
  21. METHOTREXATE [Suspect]
     Active Substance: METHOTREXATE
     Route: 048
  22. METHOTREXATE [Suspect]
     Active Substance: METHOTREXATE
     Route: 013
  23. METHOTREXATE [Suspect]
     Active Substance: METHOTREXATE
     Route: 048
  24. METHOTREXATE [Suspect]
     Active Substance: METHOTREXATE
     Route: 048
  25. METHOTREXATE [Suspect]
     Active Substance: METHOTREXATE
  26. METHOTREXATE [Suspect]
     Active Substance: METHOTREXATE
     Route: 048
  27. METHOTREXATE [Suspect]
     Active Substance: METHOTREXATE
     Route: 048
  28. METHOTREXATE [Suspect]
     Active Substance: METHOTREXATE
     Route: 048
  29. METHOTREXATE [Suspect]
     Active Substance: METHOTREXATE
     Route: 048
  30. METHOTREXATE [Suspect]
     Active Substance: METHOTREXATE
     Route: 048
  31. METHOTREXATE [Suspect]
     Active Substance: METHOTREXATE
     Route: 048
  32. METHOTREXATE [Suspect]
     Active Substance: METHOTREXATE
     Route: 048
  33. METHOTREXATE [Suspect]
     Active Substance: METHOTREXATE
     Route: 013
  34. METHOTREXATE [Suspect]
     Active Substance: METHOTREXATE
     Route: 065
  35. METHOTREXATE [Suspect]
     Active Substance: METHOTREXATE
     Route: 048
  36. METHOTREXATE [Suspect]
     Active Substance: METHOTREXATE
     Route: 048
  37. METHOTREXATE [Suspect]
     Active Substance: METHOTREXATE
     Route: 048
  38. METHOTREXATE [Suspect]
     Active Substance: METHOTREXATE
     Route: 048
  39. METHOTREXATE [Suspect]
     Active Substance: METHOTREXATE
     Route: 048
  40. METHOTREXATE [Suspect]
     Active Substance: METHOTREXATE
     Route: 013
  41. METHOTREXATE [Suspect]
     Active Substance: METHOTREXATE
     Route: 065
  42. METHOTREXATE [Suspect]
     Active Substance: METHOTREXATE
     Route: 048
  43. METHOTREXATE [Suspect]
     Active Substance: METHOTREXATE
     Route: 048
  44. METHOTREXATE [Suspect]
     Active Substance: METHOTREXATE
     Route: 048
  45. METHOTREXATE [Suspect]
     Active Substance: METHOTREXATE
     Route: 058
  46. PERIOGARD [Suspect]
     Active Substance: CHLORHEXIDINE GLUCONATE
     Indication: Product used for unknown indication
     Route: 002
  47. PERIOGARD [Suspect]
     Active Substance: CHLORHEXIDINE GLUCONATE
     Route: 065
  48. PERIOGARD [Suspect]
     Active Substance: CHLORHEXIDINE GLUCONATE
     Route: 065
  49. PERIOGARD [Suspect]
     Active Substance: CHLORHEXIDINE GLUCONATE
     Route: 048
  50. CETIRIZINE HYDROCHLORIDE\PSEUDOEPHEDRINE HYDROCHLORIDE [Suspect]
     Active Substance: CETIRIZINE HYDROCHLORIDE\PSEUDOEPHEDRINE HYDROCHLORIDE
     Indication: Rheumatoid arthritis
     Route: 065
  51. DILTIAZEM HYDROCHLORIDE [Suspect]
     Active Substance: DILTIAZEM HYDROCHLORIDE
     Indication: Product used for unknown indication
     Route: 042
  52. SIMPONI [Suspect]
     Active Substance: GOLIMUMAB
     Indication: Rheumatoid arthritis
     Route: 042
  53. SIMPONI [Suspect]
     Active Substance: GOLIMUMAB
     Route: 052
  54. SIMPONI [Suspect]
     Active Substance: GOLIMUMAB
     Route: 065
  55. SIMPONI [Suspect]
     Active Substance: GOLIMUMAB
     Route: 058
  56. SIMPONI [Suspect]
     Active Substance: GOLIMUMAB
     Route: 058
  57. SULFAMETHOXAZOLE [Suspect]
     Active Substance: SULFAMETHOXAZOLE
     Indication: Rheumatoid arthritis
     Route: 065
  58. HUMIRA [Suspect]
     Active Substance: ADALIMUMAB
     Indication: Rheumatoid arthritis
  59. RITUXIMAB [Suspect]
     Active Substance: RITUXIMAB
     Indication: Rheumatoid arthritis
     Route: 065
  60. RITUXIMAB [Suspect]
     Active Substance: RITUXIMAB
     Route: 058
  61. RITUXIMAB [Suspect]
     Active Substance: RITUXIMAB
     Route: 042
  62. RITUXIMAB [Suspect]
     Active Substance: RITUXIMAB
     Route: 042
  63. RITUXIMAB [Suspect]
     Active Substance: RITUXIMAB
     Route: 016
  64. RITUXIMAB [Suspect]
     Active Substance: RITUXIMAB
     Route: 058
  65. STELARA [Suspect]
     Active Substance: USTEKINUMAB
     Indication: Rheumatoid arthritis
     Route: 042
  66. STELARA [Suspect]
     Active Substance: USTEKINUMAB
     Route: 042
  67. STELARA [Suspect]
     Active Substance: USTEKINUMAB
     Route: 042
  68. STELARA [Suspect]
     Active Substance: USTEKINUMAB
     Route: 058
  69. XELJANZ [Suspect]
     Active Substance: TOFACITINIB CITRATE
     Indication: Rheumatoid arthritis
     Route: 065
  70. XELJANZ [Suspect]
     Active Substance: TOFACITINIB CITRATE
     Route: 065
  71. XELJANZ [Suspect]
     Active Substance: TOFACITINIB CITRATE
     Route: 048
  72. XELJANZ [Suspect]
     Active Substance: TOFACITINIB CITRATE
     Route: 065
  73. XELJANZ [Suspect]
     Active Substance: TOFACITINIB CITRATE
     Route: 048
  74. XELJANZ [Suspect]
     Active Substance: TOFACITINIB CITRATE
     Route: 065
  75. XELJANZ [Suspect]
     Active Substance: TOFACITINIB CITRATE
     Route: 065
  76. XELJANZ [Suspect]
     Active Substance: TOFACITINIB CITRATE
     Route: 065
  77. XELJANZ [Suspect]
     Active Substance: TOFACITINIB CITRATE
     Route: 065
  78. PSEUDOEPHEDRINE [Suspect]
     Active Substance: PSEUDOEPHEDRINE
     Indication: Product used for unknown indication
     Route: 065
  79. PSEUDOEPHEDRINE [Suspect]
     Active Substance: PSEUDOEPHEDRINE
     Route: 065
  80. PSEUDOEPHEDRINE [Suspect]
     Active Substance: PSEUDOEPHEDRINE
     Route: 065
  81. SULFASALAZINE [Suspect]
     Active Substance: SULFASALAZINE
     Indication: Rheumatoid arthritis
     Route: 058
  82. SULFASALAZINE [Suspect]
     Active Substance: SULFASALAZINE
     Route: 048
  83. SULFASALAZINE [Suspect]
     Active Substance: SULFASALAZINE
     Route: 048
  84. SULFASALAZINE [Suspect]
     Active Substance: SULFASALAZINE
     Route: 048
  85. SULFASALAZINE [Suspect]
     Active Substance: SULFASALAZINE
     Route: 048
  86. SULFASALAZINE [Suspect]
     Active Substance: SULFASALAZINE
     Route: 065
  87. SULFASALAZINE [Suspect]
     Active Substance: SULFASALAZINE
     Route: 048
  88. SULFASALAZINE [Suspect]
     Active Substance: SULFASALAZINE
     Route: 048
  89. SULFASALAZINE [Suspect]
     Active Substance: SULFASALAZINE
     Route: 048
  90. SULFASALAZINE [Suspect]
     Active Substance: SULFASALAZINE
     Route: 048
  91. SULFASALAZINE [Suspect]
     Active Substance: SULFASALAZINE
     Route: 048
  92. SULFASALAZINE [Suspect]
     Active Substance: SULFASALAZINE
     Route: 048
  93. SULFASALAZINE [Suspect]
     Active Substance: SULFASALAZINE
     Route: 048
  94. SULFASALAZINE [Suspect]
     Active Substance: SULFASALAZINE
     Route: 048
  95. SULFASALAZINE [Suspect]
     Active Substance: SULFASALAZINE
     Route: 048
  96. SULFASALAZINE [Suspect]
     Active Substance: SULFASALAZINE
     Route: 048
  97. SULFASALAZINE [Suspect]
     Active Substance: SULFASALAZINE
     Route: 048
  98. SULFASALAZINE [Suspect]
     Active Substance: SULFASALAZINE
     Route: 048
  99. SULFASALAZINE [Suspect]
     Active Substance: SULFASALAZINE
     Route: 048
  100. SULFASALAZINE [Suspect]
     Active Substance: SULFASALAZINE
     Route: 048
  101. SULFASALAZINE [Suspect]
     Active Substance: SULFASALAZINE
     Route: 065
  102. SULFASALAZINE [Suspect]
     Active Substance: SULFASALAZINE
     Route: 048
  103. SULFASALAZINE [Suspect]
     Active Substance: SULFASALAZINE
     Route: 048
  104. SULFASALAZINE [Suspect]
     Active Substance: SULFASALAZINE
     Route: 048
  105. SULFASALAZINE [Suspect]
     Active Substance: SULFASALAZINE
     Route: 058
  106. SULFASALAZINE [Suspect]
     Active Substance: SULFASALAZINE
     Route: 048
  107. SULFASALAZINE [Suspect]
     Active Substance: SULFASALAZINE
     Route: 048
  108. SULFASALAZINE [Suspect]
     Active Substance: SULFASALAZINE
     Route: 065
  109. SULFASALAZINE [Suspect]
     Active Substance: SULFASALAZINE
     Route: 048
  110. SULFASALAZINE [Suspect]
     Active Substance: SULFASALAZINE
     Route: 065
  111. SULFASALAZINE [Suspect]
     Active Substance: SULFASALAZINE
     Route: 065
  112. SULFASALAZINE [Suspect]
     Active Substance: SULFASALAZINE
     Route: 065
  113. ADALIMUMAB [Suspect]
     Active Substance: ADALIMUMAB
     Indication: Rheumatoid arthritis
     Route: 065
  114. ADALIMUMAB [Suspect]
     Active Substance: ADALIMUMAB
     Indication: Psoriatic arthropathy
     Route: 042
  115. ADALIMUMAB [Suspect]
     Active Substance: ADALIMUMAB
     Route: 048
  116. ADALIMUMAB [Suspect]
     Active Substance: ADALIMUMAB
     Route: 058
  117. ADALIMUMAB [Suspect]
     Active Substance: ADALIMUMAB
     Route: 058
  118. PREDNISONE [Suspect]
     Active Substance: PREDNISONE
     Indication: Psoriatic arthropathy
     Route: 048
  119. PREDNISONE [Suspect]
     Active Substance: PREDNISONE
     Indication: Condition aggravated
  120. PREDNISONE [Suspect]
     Active Substance: PREDNISONE
     Indication: Rheumatoid arthritis
  121. PREDNISONE [Suspect]
     Active Substance: PREDNISONE
     Indication: Condition aggravated
     Route: 048
  122. PREDNISONE [Suspect]
     Active Substance: PREDNISONE
     Indication: Rheumatoid arthritis
     Route: 048
  123. PREDNISONE [Suspect]
     Active Substance: PREDNISONE
     Indication: Psoriatic arthropathy
     Route: 048
  124. PREDNISONE [Suspect]
     Active Substance: PREDNISONE
     Route: 065
  125. PREDNISONE [Suspect]
     Active Substance: PREDNISONE
     Route: 048
  126. PREDNISONE [Suspect]
     Active Substance: PREDNISONE
     Route: 065
  127. PREDNISONE [Suspect]
     Active Substance: PREDNISONE
     Route: 065
  128. PREDNISONE [Suspect]
     Active Substance: PREDNISONE
     Route: 048
  129. PREDNISONE [Suspect]
     Active Substance: PREDNISONE
     Route: 048
  130. PREDNISONE [Suspect]
     Active Substance: PREDNISONE
     Route: 042
  131. PREGABALIN [Suspect]
     Active Substance: PREGABALIN
     Indication: Product used for unknown indication
     Route: 065
  132. INFLIXIMAB [Suspect]
     Active Substance: INFLIXIMAB
     Indication: Rheumatoid arthritis
     Route: 042
  133. SULFAMETHOXAZOLE [Suspect]
     Active Substance: SULFAMETHOXAZOLE
     Indication: Rheumatoid arthritis
     Route: 065
  134. COSENTYX [Suspect]
     Active Substance: SECUKINUMAB
     Indication: Rheumatoid arthritis
     Route: 005
  135. COSENTYX [Suspect]
     Active Substance: SECUKINUMAB
     Indication: Psoriatic arthropathy
     Route: 005
  136. COSENTYX [Suspect]
     Active Substance: SECUKINUMAB
     Route: 042
  137. CHLORAPREP [Suspect]
     Active Substance: CHLORHEXIDINE GLUCONATE\ISOPROPYL ALCOHOL
     Indication: Product used for unknown indication
     Route: 065
  138. CHLORAPREP [Suspect]
     Active Substance: CHLORHEXIDINE GLUCONATE\ISOPROPYL ALCOHOL
     Route: 048
  139. CHLORAPREP [Suspect]
     Active Substance: CHLORHEXIDINE GLUCONATE\ISOPROPYL ALCOHOL
     Route: 061
  140. ADALIMUMAB [Suspect]
     Active Substance: ADALIMUMAB
     Indication: Rheumatoid arthritis
     Route: 058
  141. COSENTYX [Suspect]
     Active Substance: SECUKINUMAB
     Indication: Psoriatic arthropathy
     Route: 042
  142. COSENTYX [Suspect]
     Active Substance: SECUKINUMAB
     Indication: Rheumatoid arthritis
  143. HYDROXYCHLOROQUINE [Suspect]
     Active Substance: HYDROXYCHLOROQUINE
     Indication: Product used for unknown indication
     Route: 005
  144. PHTHALYLSULFATHIAZOLE [Suspect]
     Active Substance: PHTHALYLSULFATHIAZOLE
     Indication: Rheumatoid arthritis
     Route: 058
  145. PHTHALYLSULFATHIAZOLE [Suspect]
     Active Substance: PHTHALYLSULFATHIAZOLE
     Route: 048
  146. PHTHALYLSULFATHIAZOLE [Suspect]
     Active Substance: PHTHALYLSULFATHIAZOLE
     Route: 048
  147. PHTHALYLSULFATHIAZOLE [Suspect]
     Active Substance: PHTHALYLSULFATHIAZOLE
     Route: 065
  148. PHTHALYLSULFATHIAZOLE [Suspect]
     Active Substance: PHTHALYLSULFATHIAZOLE
     Route: 065
  149. PHTHALYLSULFATHIAZOLE [Suspect]
     Active Substance: PHTHALYLSULFATHIAZOLE
  150. PHTHALYLSULFATHIAZOLE [Suspect]
     Active Substance: PHTHALYLSULFATHIAZOLE
     Route: 016
  151. PHTHALYLSULFATHIAZOLE [Suspect]
     Active Substance: PHTHALYLSULFATHIAZOLE
     Route: 048
  152. PHTHALYLSULFATHIAZOLE [Suspect]
     Active Substance: PHTHALYLSULFATHIAZOLE
     Route: 042
  153. PHTHALYLSULFATHIAZOLE [Suspect]
     Active Substance: PHTHALYLSULFATHIAZOLE
     Route: 048
  154. PHTHALYLSULFATHIAZOLE [Suspect]
     Active Substance: PHTHALYLSULFATHIAZOLE
     Route: 065
  155. PHTHALYLSULFATHIAZOLE [Suspect]
     Active Substance: PHTHALYLSULFATHIAZOLE
     Route: 048
  156. PHTHALYLSULFATHIAZOLE [Suspect]
     Active Substance: PHTHALYLSULFATHIAZOLE
     Route: 048
  157. PHTHALYLSULFATHIAZOLE [Suspect]
     Active Substance: PHTHALYLSULFATHIAZOLE
     Route: 048
  158. PHTHALYLSULFATHIAZOLE [Suspect]
     Active Substance: PHTHALYLSULFATHIAZOLE
     Route: 048
  159. ORENCIA [Suspect]
     Active Substance: ABATACEPT
     Indication: Rheumatoid arthritis
     Route: 042
  160. ORENCIA [Suspect]
     Active Substance: ABATACEPT
     Route: 042
  161. ORENCIA [Suspect]
     Active Substance: ABATACEPT
     Route: 015
  162. ORENCIA [Suspect]
     Active Substance: ABATACEPT
     Route: 048
  163. ORENCIA [Suspect]
     Active Substance: ABATACEPT
     Route: 065
  164. ORENCIA [Suspect]
     Active Substance: ABATACEPT
     Route: 017
  165. SIMPONI [Suspect]
     Active Substance: GOLIMUMAB
     Indication: Rheumatoid arthritis
     Route: 058
  166. REMICADE [Suspect]
     Active Substance: INFLIXIMAB
     Indication: Rheumatoid arthritis
     Route: 065
  167. REMICADE [Suspect]
     Active Substance: INFLIXIMAB
     Route: 042
  168. REMICADE [Suspect]
     Active Substance: INFLIXIMAB
     Route: 042
  169. REMICADE [Suspect]
     Active Substance: INFLIXIMAB
     Route: 042
  170. CETIRIZINE HYDROCHLORIDE [Suspect]
     Active Substance: CETIRIZINE HYDROCHLORIDE
     Indication: Rheumatoid arthritis
     Route: 016
  171. CETIRIZINE HYDROCHLORIDE [Suspect]
     Active Substance: CETIRIZINE HYDROCHLORIDE
     Route: 065
  172. CETIRIZINE HYDROCHLORIDE [Suspect]
     Active Substance: CETIRIZINE HYDROCHLORIDE
     Route: 065
  173. CETIRIZINE HYDROCHLORIDE [Suspect]
     Active Substance: CETIRIZINE HYDROCHLORIDE
     Route: 065
  174. RITUXIMAB [Suspect]
     Active Substance: RITUXIMAB
     Indication: Rheumatoid arthritis
     Route: 065
  175. PREDNISONE [Suspect]
     Active Substance: PREDNISONE
     Indication: Rheumatoid arthritis
     Route: 048
  176. DICLOFENAC POTASSIUM [Suspect]
     Active Substance: DICLOFENAC POTASSIUM
     Indication: Product used for unknown indication
     Dosage: UNK
     Route: 058
  177. DICLOFENAC SODIUM [Suspect]
     Active Substance: DICLOFENAC SODIUM
     Indication: Product used for unknown indication
     Dosage: 50 MG
     Route: 047
  178. DICLOFENAC SODIUM [Suspect]
     Active Substance: DICLOFENAC SODIUM
     Dosage: UNK
     Route: 058
  179. DICLOFENAC SODIUM [Suspect]
     Active Substance: DICLOFENAC SODIUM
     Dosage: 50 MG
     Route: 065
  180. ERELZI [Suspect]
     Active Substance: ETANERCEPT-SZZS
     Indication: Rheumatoid arthritis
     Route: 065
  181. ERELZI [Suspect]
     Active Substance: ETANERCEPT-SZZS
     Route: 065
  182. ERELZI [Suspect]
     Active Substance: ETANERCEPT-SZZS
     Route: 065
  183. ERELZI [Suspect]
     Active Substance: ETANERCEPT-SZZS
     Route: 058
  184. ERELZI [Suspect]
     Active Substance: ETANERCEPT-SZZS
     Route: 058
  185. SULFAMETHOXAZOLE [Suspect]
     Active Substance: SULFAMETHOXAZOLE
     Indication: Rheumatoid arthritis
     Dosage: SULFAMETHOXAZOLE (SULFAMETHOXAZOLE)
     Route: 065
  186. DICLOFENAC POTASSIUM [Suspect]
     Active Substance: DICLOFENAC POTASSIUM
     Indication: Product used for unknown indication
     Route: 048
  187. XELJANZ [Suspect]
     Active Substance: TOFACITINIB CITRATE
     Indication: Rheumatoid arthritis
     Route: 065
  188. STELARA [Suspect]
     Active Substance: USTEKINUMAB
     Indication: Rheumatoid arthritis
     Route: 058
  189. TRIAMCINOLONE ACETONIDE [Suspect]
     Active Substance: TRIAMCINOLONE ACETONIDE
     Indication: Rheumatoid arthritis
     Route: 014
  190. FLUMETHASONE PIVALATE [Suspect]
     Active Substance: FLUMETHASONE PIVALATE
     Indication: Rheumatoid arthritis
     Route: 003
  191. MOXIFLOXACIN [Suspect]
     Active Substance: MOXIFLOXACIN
     Indication: Product used for unknown indication
     Route: 058
  192. PREDNISOLONE [Suspect]
     Active Substance: PREDNISOLONE
     Indication: Product used for unknown indication
     Route: 048
  193. PREDNISOLONE [Suspect]
     Active Substance: PREDNISOLONE
     Route: 065
  194. PREDNISOLONE [Suspect]
     Active Substance: PREDNISOLONE
     Route: 065
  195. PREDNISOLONE [Suspect]
     Active Substance: PREDNISOLONE
     Route: 048
  196. LEFLUNOMIDE [Suspect]
     Active Substance: LEFLUNOMIDE
     Indication: Product used for unknown indication
     Route: 048
  197. COSENTYX [Concomitant]
     Active Substance: SECUKINUMAB
     Indication: Product used for unknown indication

REACTIONS (53)
  - Liver injury [Fatal]
  - Deep vein thrombosis postoperative [Fatal]
  - Lower limb fracture [Fatal]
  - Musculoskeletal stiffness [Fatal]
  - Underdose [Fatal]
  - Pain in extremity [Fatal]
  - Gait inability [Fatal]
  - Hand deformity [Fatal]
  - Nasopharyngitis [Fatal]
  - Anti-cyclic citrullinated peptide antibody [Fatal]
  - Facet joint syndrome [Fatal]
  - Fatigue [Fatal]
  - Blister [Fatal]
  - Asthma [Fatal]
  - Impaired healing [Fatal]
  - Headache [Fatal]
  - Helicobacter infection [Fatal]
  - X-ray abnormal [Fatal]
  - Folliculitis [Fatal]
  - Confusional state [Fatal]
  - Autoimmune disorder [Fatal]
  - Abdominal pain [Fatal]
  - Gastrointestinal disorder [Fatal]
  - Contusion [Fatal]
  - Condition aggravated [Fatal]
  - Drug hypersensitivity [Fatal]
  - Muscle injury [Fatal]
  - Oedema peripheral [Fatal]
  - C-reactive protein abnormal [Fatal]
  - Musculoskeletal pain [Fatal]
  - Hypoaesthesia [Fatal]
  - Joint swelling [Fatal]
  - Alopecia [Fatal]
  - Bone erosion [Fatal]
  - Asthenia [Fatal]
  - Anxiety [Fatal]
  - Fibromyalgia [Fatal]
  - Intentional product use issue [Fatal]
  - Injury [Fatal]
  - Muscle spasms [Fatal]
  - Glossodynia [Fatal]
  - Lung disorder [Fatal]
  - Drug intolerance [Fatal]
  - C-reactive protein increased [Fatal]
  - Decreased appetite [Fatal]
  - Bursitis [Fatal]
  - Lower respiratory tract infection [Fatal]
  - Hypersensitivity [Fatal]
  - Blood cholesterol increased [Fatal]
  - Chest pain [Fatal]
  - Night sweats [Fatal]
  - Obesity [Fatal]
  - Synovitis [Fatal]
